FAERS Safety Report 18495032 (Version 1)
Quarter: 2020Q4

REPORT INFORMATION
  Report Type: Spontaneous
  Country: US (occurrence: US)
  Receive Date: 20201111
  Receipt Date: 20201111
  Transmission Date: 20210114
  Serious: Yes (Hospitalization)
  Sender: FDA-Public Use
  Company Number: None

PATIENT
  Age: 51 Year
  Sex: Male
  Weight: 163.29 kg

DRUGS (1)
  1. CEFAZOLIN (CEFAZOLIN NA 1GM/VIL INJ) [Suspect]
     Active Substance: CEFAZOLIN
     Indication: VASCULAR OPERATION
     Route: 042
     Dates: start: 20200806, end: 20200806

REACTIONS (11)
  - Face oedema [None]
  - Pruritus [None]
  - Periorbital swelling [None]
  - Rash maculo-papular [None]
  - Oral pain [None]
  - Gingival pain [None]
  - Hypophagia [None]
  - Erythema [None]
  - Rash [None]
  - Oral mucosal blistering [None]
  - Dysphagia [None]

NARRATIVE: CASE EVENT DATE: 20200806
